FAERS Safety Report 4760416-0 (Version None)
Quarter: 2005Q3

REPORT INFORMATION
  Report Type: 
  Country: None (occurrence: None)
  Receive Date: 20050902
  Receipt Date: 20050705
  Transmission Date: 20060218
  Serious: Yes (Life-Threatening, Hospitalization, Other)
  Sender: FDA-Public Use
  Company Number: US-BRISTOL-MYERS SQUIBB COMPANY-13026489

PATIENT
  Age: 60 Year
  Sex: Male

DRUGS (5)
  1. CETUXIMAB [Suspect]
     Indication: NON-SMALL CELL LUNG CANCER
     Dosage: PT REC'D APPROXIMATELY 31 MG OUT OF 750 MG WHEN EVENT OCCURRED.
     Route: 042
     Dates: start: 20050705, end: 20050705
  2. BENADRYL [Concomitant]
     Dosage: GIVEN AT 1020.
     Route: 042
     Dates: start: 20050705, end: 20050705
  3. VALIUM [Concomitant]
     Dates: start: 19850101
  4. ROXICODONE [Concomitant]
     Dates: start: 20030101
  5. ROBAXIN [Concomitant]
     Dates: start: 19850101

REACTIONS (2)
  - HYPERSENSITIVITY [None]
  - RESPIRATORY ARREST [None]
